FAERS Safety Report 11543693 (Version 1)
Quarter: 2015Q3

REPORT INFORMATION
  Report Type: Spontaneous
  Country: BR (occurrence: BR)
  Receive Date: 20150924
  Receipt Date: 20150924
  Transmission Date: 20151125
  Serious: Yes (Other)
  Sender: FDA-Public Use
  Company Number: BR-ASTRAZENECA-2015SE91400

PATIENT
  Age: 11542 Day
  Sex: Female

DRUGS (5)
  1. SIRDALUD [Concomitant]
     Active Substance: TIZANIDINE
     Indication: INTERVERTEBRAL DISC PROTRUSION
     Dosage: EVERY SIX HOURS
     Route: 048
     Dates: start: 201506
  2. TRAMADOL. [Concomitant]
     Active Substance: TRAMADOL
     Indication: INTERVERTEBRAL DISC PROTRUSION
     Dosage: EVERY SIX HOURS
     Route: 048
     Dates: start: 201506
  3. VIMOVO [Suspect]
     Active Substance: ESOMEPRAZOLE MAGNESIUM\NAPROXEN
     Indication: INTERVERTEBRAL DISC PROTRUSION
     Dosage: DAILY
     Route: 048
     Dates: start: 20150915, end: 20150916
  4. KETOROLAC [Concomitant]
     Active Substance: KETOROLAC\KETOROLAC TROMETHAMINE
     Indication: INTERVERTEBRAL DISC PROTRUSION
     Dosage: EVERY 12 HOURS
     Route: 048
     Dates: start: 201506
  5. OMEPRAZOLE. [Suspect]
     Active Substance: OMEPRAZOLE
     Indication: GASTRIC DISORDER
     Route: 048
     Dates: start: 201508

REACTIONS (5)
  - Off label use [Recovered/Resolved]
  - Product use issue [Recovered/Resolved]
  - Vision blurred [Not Recovered/Not Resolved]
  - Eye pain [Not Recovered/Not Resolved]
  - Haematemesis [Not Recovered/Not Resolved]

NARRATIVE: CASE EVENT DATE: 20150915
